FAERS Safety Report 14697265 (Version 1)
Quarter: 2018Q1

REPORT INFORMATION
  Report Type: Spontaneous
  Country: US (occurrence: US)
  Receive Date: 20180330
  Receipt Date: 20180330
  Transmission Date: 20180509
  Serious: No
  Sender: FDA-Public Use
  Company Number: US-SA-2017SA130435

PATIENT
  Sex: Female

DRUGS (1)
  1. ALLEGRA ALLERGY [Suspect]
     Active Substance: FEXOFENADINE HYDROCHLORIDE
     Dosage: FREQ. 3 TAB IN 24 HOURS; 1 AT 4:00 PM YESTERDAY, 1 AT MIDNIGHT AND ANOTHER THIS MORNING AT 8:30 AM.
     Route: 048

REACTIONS (1)
  - Overdose [Unknown]
